FAERS Safety Report 8252533-8 (Version None)
Quarter: 2012Q2

REPORT INFORMATION
  Report Type: 
  Country: None (occurrence: None)
  Receive Date: 20120402
  Receipt Date: 20111021
  Transmission Date: 20120825
  Serious: No
  Sender: FDA-Public Use
  Company Number: US-ABBOTT-11P-163-0868798-00

PATIENT
  Age: 60 Year
  Sex: Male
  Weight: 86.26 kg

DRUGS (4)
  1. KLONOPIN [Concomitant]
     Indication: ANXIETY
  2. LISINOPRIL [Concomitant]
     Indication: HYPERTENSION
  3. ANDROGEL [Suspect]
     Indication: BLOOD TESTOSTERONE DECREASED
     Dosage: MISSED FEW DOSES B/C FORGET TO TAKE AND RX UNABLE TO GET PRESCRIPTION.
     Route: 061
     Dates: start: 20110301
  4. UNITHROID [Concomitant]
     Indication: THYROID FUNCTION TEST ABNORMAL

REACTIONS (4)
  - FEELING ABNORMAL [None]
  - DEPRESSED MOOD [None]
  - DRUG DOSE OMISSION [None]
  - MOOD ALTERED [None]
